FAERS Safety Report 11824195 (Version 3)
Quarter: 2016Q1

REPORT INFORMATION
  Report Type: Spontaneous
  Country: US (occurrence: US)
  Receive Date: 20151210
  Receipt Date: 20160212
  Transmission Date: 20160525
  Serious: Yes (Hospitalization, Other)
  Sender: FDA-Public Use
  Company Number: US-PFIZER INC-2015431172

PATIENT
  Age: 56 Year
  Sex: Male

DRUGS (28)
  1. EFFEXOR XR [Suspect]
     Active Substance: VENLAFAXINE HYDROCHLORIDE
     Indication: DEPRESSION
     Dosage: 150 MG, 2X/DAY
     Route: 048
     Dates: start: 2009
  2. NORCO [Concomitant]
     Active Substance: ACETAMINOPHEN\HYDROCODONE BITARTRATE
     Dosage: ONE (HYDROCODONE BITARTRATE-10MG/PARACETAMOL-325MG), 4X/DAY
     Route: 048
  3. ADDERALL [Concomitant]
     Active Substance: AMPHETAMINE ASPARTATE\AMPHETAMINE SULFATE\DEXTROAMPHETAMINE SACCHARATE\DEXTROAMPHETAMINE SULFATE
     Dosage: 40 MG, 2X/DAY
     Route: 048
  4. BUPROPION SR [Concomitant]
     Active Substance: BUPROPION
     Dosage: 150 MG, 2X/DAY
     Route: 048
  5. EPIPEN [Concomitant]
     Active Substance: EPINEPHRINE
     Dosage: 0.3 MG, AS NEEDED
  6. IBUPROFEN. [Concomitant]
     Active Substance: IBUPROFEN
     Dosage: 800 MG, AS NEEDED
     Route: 048
  7. HYDROCHLOROTHIAZIDE. [Concomitant]
     Active Substance: HYDROCHLOROTHIAZIDE
     Dosage: 12.5MG, DAILY
     Route: 048
  8. GLIPIZIDE. [Concomitant]
     Active Substance: GLIPIZIDE
     Dosage: 10 MG, DAILY
     Route: 048
  9. RANITIDINE [Concomitant]
     Active Substance: RANITIDINE\RANITIDINE HYDROCHLORIDE
     Dosage: 300 MG, AS NEEDED
     Route: 048
  10. ATORVASTATIN [Concomitant]
     Active Substance: ATORVASTATIN
     Dosage: 80 MG, DAILY
     Route: 048
  11. FUROSEMIDE. [Concomitant]
     Active Substance: FUROSEMIDE
     Dosage: 20 MG, DAILY
     Route: 048
  12. VITAMIN D [Concomitant]
     Active Substance: CHOLECALCIFEROL
     Dosage: 2000 IU, DAILY
     Route: 048
  13. FEXOFENADINE [Concomitant]
     Active Substance: FEXOFENADINE\FEXOFENADINE HYDROCHLORIDE
     Indication: HYPERSENSITIVITY
     Dosage: 180 MG, DAILY AS NEEDED
     Route: 048
  14. LANTUS/TOUJEO [Concomitant]
     Dosage: 60 IU, 1X/DAY (Q.A.M)
     Route: 058
  15. FENOFIBRATE. [Concomitant]
     Active Substance: FENOFIBRATE
     Indication: HYPERLIPIDAEMIA
     Dosage: 145 MG, DAILY
     Route: 048
  16. VITAMIN B12 [Concomitant]
     Active Substance: CYANOCOBALAMIN
     Dosage: 1 MG, MONTHLY
     Route: 058
  17. FLOXIN OTIC [Concomitant]
     Active Substance: OFLOXACIN
     Dosage: UNK, AS NEEDED
  18. AMBIEN [Concomitant]
     Active Substance: ZOLPIDEM TARTRATE
     Indication: INSOMNIA
     Dosage: 10 MG, AT BEDTIME AS NEEDED (AT BEDTIME )
     Route: 048
  19. VIAGRA [Suspect]
     Active Substance: SILDENAFIL CITRATE
     Dosage: 100 MG, AS NEEDED
     Route: 048
  20. OMEPRAZOLE. [Concomitant]
     Active Substance: OMEPRAZOLE
     Dosage: 20 MG, DAILY
     Route: 048
  21. HYDROXYZINE [Concomitant]
     Active Substance: HYDROXYZINE\HYDROXYZINE HYDROCHLORIDE
     Dosage: 25 MG, AT BEDTIME AND AS NEEDED (AT BEDTIME)
     Route: 048
  22. MECLIZINE [Concomitant]
     Active Substance: MECLIZINE HYDROCHLORIDE
     Indication: VERTIGO
     Dosage: 25 MG, THREE TIMES A DAY AS NEEDED
     Route: 048
  23. LYRICA [Suspect]
     Active Substance: PREGABALIN
     Indication: DIABETIC NEUROPATHY
     Dosage: 100 MG, 3X/DAY
     Route: 048
     Dates: start: 2009
  24. VIAGRA [Suspect]
     Active Substance: SILDENAFIL CITRATE
     Indication: ERECTILE DYSFUNCTION
     Dosage: 100 MG, 2X/WEEK
     Route: 048
     Dates: start: 2013
  25. LISINOPRIL. [Concomitant]
     Active Substance: LISINOPRIL
     Dosage: 30 MG, DAILY
     Route: 048
     Dates: start: 2000
  26. ALLOPURINOL. [Concomitant]
     Active Substance: ALLOPURINOL
     Dosage: 300 MG, DAILY
     Route: 048
     Dates: start: 1998
  27. LANTUS [Concomitant]
     Active Substance: INSULIN GLARGINE
     Dosage: UNK
     Dates: start: 2013
  28. FLONASE [Concomitant]
     Active Substance: FLUTICASONE PROPIONATE
     Dosage: (2 SPRAYS EACH NOSTRIL), AS NEEDED DAILY

REACTIONS (25)
  - Pancreatitis [Recovered/Resolved]
  - Atrial tachycardia [Unknown]
  - Gout [Unknown]
  - Gastrooesophageal reflux disease [Recovering/Resolving]
  - Depression [Unknown]
  - Gallbladder enlargement [Unknown]
  - Blood triglycerides increased [Recovering/Resolving]
  - Hypertension [Recovering/Resolving]
  - Pyrexia [Unknown]
  - Hepatic steatosis [Unknown]
  - Cutaneous lupus erythematosus [Unknown]
  - Cholelithiasis [Unknown]
  - Intervertebral disc degeneration [Unknown]
  - Rhinitis allergic [Unknown]
  - Diabetic neuropathy [Unknown]
  - Abdominal pain [Recovering/Resolving]
  - Lipase increased [Recovered/Resolved]
  - Nephrolithiasis [Unknown]
  - Vertigo [Unknown]
  - Type 2 diabetes mellitus [Unknown]
  - Glycosylated haemoglobin increased [Unknown]
  - Bundle branch block right [Unknown]
  - Hypertriglyceridaemia [Unknown]
  - Vitamin B12 deficiency [Unknown]
  - Hyperlipidaemia [Unknown]

NARRATIVE: CASE EVENT DATE: 201511
